FAERS Safety Report 9900364 (Version 1)
Quarter: 2014Q1

REPORT INFORMATION
  Report Type: Spontaneous
  Country: FR (occurrence: FR)
  Receive Date: 20140216
  Receipt Date: 20140216
  Transmission Date: 20141002
  Serious: Yes (Hospitalization)
  Sender: FDA-Public Use
  Company Number: FR-PFIZER INC-2014038080

PATIENT
  Age: 72 Year
  Sex: Female

DRUGS (8)
  1. REVATIO [Suspect]
     Indication: PULMONARY ARTERIAL HYPERTENSION
     Dosage: 3 DF, DAILY
     Route: 048
     Dates: start: 2007
  2. INEXIUM /01479302/ [Suspect]
     Dosage: UNK
     Route: 048
     Dates: start: 2013, end: 2014
  3. VOLIBRIS [Suspect]
     Indication: PULMONARY ARTERIAL HYPERTENSION
     Dosage: 1 DF, DAILY
     Route: 048
     Dates: start: 2010
  4. CACIT VITAMINE D3 [Suspect]
     Indication: MINERAL SUPPLEMENTATION
     Dosage: 1 DF, DAILY
     Route: 048
     Dates: start: 2009
  5. LASILIX [Suspect]
     Indication: HYPERTENSION
     Dosage: 1.5 DF, DAILY
     Route: 048
     Dates: start: 2004
  6. DIFFU K [Suspect]
     Indication: MINERAL SUPPLEMENTATION
     Dosage: 2 DFS IN THE MORNING, 2 DFS AT LUNCH AND 1 DF IN THE EVENING
     Route: 048
     Dates: start: 2005
  7. PREVISCAN [Suspect]
     Indication: PULMONARY ARTERIAL HYPERTENSION
     Dosage: 1 DF IN THE MORNING AND AT LUNCH AND 0.75 DF IN THE EVENING
     Route: 048
     Dates: start: 2004
  8. LEVOTHYROX [Suspect]
     Indication: THYROID DISORDER
     Dosage: 62.5 UG, DAILY
     Route: 048
     Dates: start: 2004

REACTIONS (1)
  - Neutropenia [Recovering/Resolving]
